FAERS Safety Report 25104386 (Version 2)
Quarter: 2025Q2

REPORT INFORMATION
  Report Type: Report from Study
  Country: US (occurrence: US)
  Receive Date: 20250321
  Receipt Date: 20250404
  Transmission Date: 20250717
  Serious: Yes (Other)
  Sender: ORPHAZYME
  Company Number: US-ZEVRA DENMARK A/S-ORP-000294

PATIENT
  Age: 37 Year
  Sex: Female
  Weight: 60.8 kg

DRUGS (3)
  1. ARIMOCLOMOL CITRATE [Suspect]
     Active Substance: ARIMOCLOMOL CITRATE
     Indication: Niemann-Pick disease
     Dosage: 200 MILLIGRAM, TID
     Route: 048
     Dates: start: 20210127
  2. MIGLUSTAT [Concomitant]
     Active Substance: MIGLUSTAT
     Indication: Niemann-Pick disease
     Route: 048
     Dates: start: 202005
  3. DETROL [Concomitant]
     Active Substance: TOLTERODINE TARTRATE
     Indication: Hypertonic bladder
     Dosage: 2 MILLIGRAM, QD
     Route: 048
     Dates: start: 20210804

REACTIONS (1)
  - Chronic kidney disease [Recovered/Resolved]

NARRATIVE: CASE EVENT DATE: 20210519
